FAERS Safety Report 23606604 (Version 1)
Quarter: 2024Q1

REPORT INFORMATION
  Report Type: Spontaneous
  Country: CN (occurrence: CN)
  Receive Date: 20240307
  Receipt Date: 20240307
  Transmission Date: 20240409
  Serious: Yes (Death, Other)
  Sender: FDA-Public Use
  Company Number: CN-STRIDES ARCOLAB LIMITED-2024SP002572

PATIENT
  Age: 70 Year
  Sex: Male

DRUGS (13)
  1. ETOPOSIDE [Suspect]
     Active Substance: ETOPOSIDE
     Indication: Plasmacytoma
     Dosage: 100 MILLIGRAM (ON DAYS 1-3 EVERY 28 DAYS, AS PART OF DECP REGIMEN)
     Route: 065
     Dates: start: 202111
  2. DOXORUBICIN [Suspect]
     Active Substance: DOXORUBICIN
     Indication: Plasmacytoma
     Dosage: 10 MILLIGRAM/SQ. METER, CYCLICAL, 5 CYCLES ( (ON DAYS 1-4 OF 21 DAYS CYCLE; PAD REGIMEN)
     Route: 065
     Dates: start: 20200130
  3. BORTEZOMIB [Suspect]
     Active Substance: BORTEZOMIB
     Indication: Plasmacytoma
     Dosage: 1.3 MILLIGRAM/SQ. METER, CYCLICAL, 5 CYCLES ((ON DAYS 1, 4, 8, AND 11 OF 21?DAYS CYCLE; AS PART OF P
     Route: 065
     Dates: start: 20200130
  4. BORTEZOMIB [Suspect]
     Active Substance: BORTEZOMIB
     Indication: Plasmacytoma
     Dosage: 1.3 MILLIGRAM/SQ. METER, CYCLICAL, 2 CYCLES ((ON DAYS 1, 4, 8, AND 11 OF 21?DAYS CYCLE; AS PART OF V
     Route: 065
     Dates: start: 202102, end: 202104
  5. LENALIDOMIDE [Suspect]
     Active Substance: LENALIDOMIDE
     Indication: Plasmacytoma
     Dosage: 25 MILLIGRAM, CYCLICAL(ON DAYS 1-14 OF 21 DAYS CYCLE; AS PART OF VRD REGIMEN) (2 CYCLES)
     Route: 065
     Dates: start: 202102, end: 202104
  6. DEXAMETHASONE [Suspect]
     Active Substance: DEXAMETHASONE
     Indication: Plasmacytoma
     Dosage: 20 MILLIGRAM, CYCLICAL, 5 CYCLES (ON DAYS 1, 2, 4, 5, 8, 9, 11 AND 12 OF 21 DAYS CYCLE; AS PART OF P
     Route: 065
     Dates: start: 20200130, end: 2021
  7. DEXAMETHASONE [Suspect]
     Active Substance: DEXAMETHASONE
     Indication: Plasmacytoma
     Dosage: 20 MILLIGRAM, CYCLICAL, 2 CYCLE (ON DAYS 1, 2, 4, 5, 8, 9, 11 AND 12 OF 21 DAYS CYCLE; AS PART OF VR
     Route: 065
     Dates: start: 202102, end: 202104
  8. DEXAMETHASONE [Suspect]
     Active Substance: DEXAMETHASONE
     Dosage: 20 MILLIGRAM, CYCLICAL (ON DAYS1,2,8,9,15,16, 22 AND 23, EVERY 28 DAYS FOR 3 CYCLES; AS PART OF DPD
     Route: 065
     Dates: start: 202107, end: 202110
  9. DEXAMETHASONE [Suspect]
     Active Substance: DEXAMETHASONE
     Dosage: 20 MILLIGRAM (ON DAYS 1-4 EVERY 28 DAYS CYCLE; AS PART OF DECP REGIMEN)
     Route: 065
     Dates: start: 202111
  10. DARATUMUMAB [Suspect]
     Active Substance: DARATUMUMAB
     Indication: Plasmacytoma
     Dosage: 16 MILLIGRAM/KILOGRAM, CYCLICAL, 3 CYCLES (DPD REGIMEN)
     Route: 065
     Dates: start: 202107, end: 202110
  11. POMALIDOMIDE [Suspect]
     Active Substance: POMALIDOMIDE
     Indication: Plasmacytoma
     Dosage: 4 MILLIGRAM, CYCLICAL (ON DAYS 1-21 EVERY 28 DAYS FOR 3 CYCLES; AS PART OF DPD REGIMEN)
     Route: 065
     Dates: start: 202107, end: 202110
  12. CYCLOPHOSPHAMIDE [Suspect]
     Active Substance: CYCLOPHOSPHAMIDE
     Indication: Plasmacytoma
     Dosage: 500 MILLIGRAM/SQ. METER (ON DAYS 1-4 EVERY 28 DAYS, AS PART OF DECP REGIMEN)
     Route: 065
     Dates: start: 202111
  13. CISPLATIN [Suspect]
     Active Substance: CISPLATIN
     Indication: Plasmacytoma
     Dosage: 20 MILLIGRAM/SQ. METER (ON DAYS 1-3 EVERY 28 DAYS, AS PART OF DECP REGIMEN)
     Route: 065
     Dates: start: 202111

REACTIONS (4)
  - Respiratory failure [Fatal]
  - Pneumonia [Fatal]
  - Drug ineffective for unapproved indication [Unknown]
  - Malignant neoplasm progression [Unknown]
